FAERS Safety Report 8761725 (Version 1)
Quarter: 2012Q4

REPORT INFORMATION
  Report Type: Spontaneous
  Country: US (occurrence: None)
  Receive Date: 20120830
  Receipt Date: 20120830
  Transmission Date: 20130627
  Serious: Yes (Hospitalization)
  Sender: FDA-Public Use
  Company Number: None

PATIENT
  Sex: Male
  Weight: 72.1 kg

DRUGS (19)
  1. BEVACIZUMAB [Suspect]
  2. CARBOPLATIN [Suspect]
  3. PACLITAXEL [Suspect]
  4. ASPIRIN [Concomitant]
  5. AUGMENTIN [Concomitant]
  6. DUONEB [Concomitant]
  7. FISH OIL [Suspect]
  8. FLOMAX [Concomitant]
  9. FOLIC ACID [Concomitant]
  10. GLIPIZIDE [Concomitant]
  11. GLUCOSAMINE CHONDROITIN [Concomitant]
  12. KEPPRA [Concomitant]
  13. LISINOPRIL [Concomitant]
  14. MELATONIN [Concomitant]
  15. MULTIVITAMIN [Concomitant]
  16. NEULASTA [Concomitant]
  17. NORVASC [Concomitant]
  18. SEROQUIL [Concomitant]
  19. VITAMIN B12 [Concomitant]

REACTIONS (9)
  - Pneumonia [None]
  - Confusional state [None]
  - Delirium [None]
  - Hyponatraemia [None]
  - Fall [None]
  - Agitation [None]
  - Chest pain [None]
  - Electrocardiogram ST segment elevation [None]
  - Stress cardiomyopathy [None]
